FAERS Safety Report 19996389 (Version 1)
Quarter: 2021Q4

REPORT INFORMATION
  Report Type: Report from Study
  Country: US (occurrence: US)
  Receive Date: 20211026
  Receipt Date: 20211026
  Transmission Date: 20220303
  Serious: Yes (Hospitalization, Other)
  Sender: FDA-Public Use
  Company Number: US-MYLANLABS-2021M1075069

PATIENT
  Age: 32 Year
  Sex: Male
  Weight: 74.5 kg

DRUGS (12)
  1. PREDNISONE [Suspect]
     Active Substance: PREDNISONE
     Indication: Chronic graft versus host disease
     Dosage: 30 MILLIGRAM, QD
     Route: 048
     Dates: start: 20210828
  2. ITACITINIB [Suspect]
     Active Substance: ITACITINIB
     Indication: Chronic graft versus host disease
     Dosage: 300 MILLIGRAM, QD
     Route: 048
     Dates: start: 20210827, end: 20210902
  3. ITACITINIB [Suspect]
     Active Substance: ITACITINIB
     Dosage: 200 MILLIGRAM, QD
     Route: 048
     Dates: start: 20210908, end: 20210916
  4. ITACITINIB [Suspect]
     Active Substance: ITACITINIB
     Dosage: 300 MILLIGRAM, QD
     Route: 048
     Dates: start: 20210922
  5. TACROLIMUS [Concomitant]
     Active Substance: TACROLIMUS
     Dosage: UNK
     Dates: start: 20210825
  6. XARELTO [Concomitant]
     Active Substance: RIVAROXABAN
     Dosage: UNK
     Dates: start: 20210630
  7. VITAMIN K [Concomitant]
     Active Substance: PHYTONADIONE
     Dosage: UNK
     Dates: start: 20210830, end: 20210830
  8. POSACONAZOLE [Concomitant]
     Active Substance: POSACONAZOLE
     Dosage: UNK
     Dates: start: 202012
  9. TRIAMCINOLONE [Concomitant]
     Active Substance: TRIAMCINOLONE
     Dosage: UNK
     Dates: start: 202108
  10. AMOXICILLIN\CLAVULANATE POTASSIUM [Concomitant]
     Active Substance: AMOXICILLIN\CLAVULANATE POTASSIUM
     Dosage: UNK
     Dates: start: 20210830, end: 20210902
  11. PIPERACILLIN SODIUM\TAZOBACTAM SODIUM [Concomitant]
     Active Substance: PIPERACILLIN SODIUM\TAZOBACTAM SODIUM
     Dosage: UNK
     Dates: start: 20210902, end: 20210903
  12. OXYCODONE [Concomitant]
     Active Substance: OXYCODONE
     Dosage: UNK
     Dates: start: 201905

REACTIONS (8)
  - Pneumonia [Unknown]
  - Diarrhoea [Recovered/Resolved]
  - Pain in extremity [Recovered/Resolved]
  - Activated partial thromboplastin time prolonged [Recovered/Resolved]
  - International normalised ratio increased [Recovered/Resolved]
  - Abdominal pain [Recovered/Resolved]
  - Blood culture positive [Unknown]
  - Myositis [Recovered/Resolved]

NARRATIVE: CASE EVENT DATE: 20210901
